FAERS Safety Report 8126890-7 (Version None)
Quarter: 2012Q1

REPORT INFORMATION
  Report Type: 
  Country: None (occurrence: None)
  Receive Date: 20120210
  Receipt Date: 20120206
  Transmission Date: 20120608
  Serious: No
  Sender: FDA-Public Use
  Company Number: US-PFIZER INC-2012033003

PATIENT
  Sex: Female

DRUGS (1)
  1. LYRICA [Suspect]
     Indication: NERVE INJURY
     Dosage: UNK

REACTIONS (6)
  - PREGNANCY TEST NEGATIVE [None]
  - ABDOMINAL DISTENSION [None]
  - BREAST DISCHARGE [None]
  - ABDOMINAL DISCOMFORT [None]
  - BREAST TENDERNESS [None]
  - FOOD CRAVING [None]
